FAERS Safety Report 25756858 (Version 1)
Quarter: 2025Q3

REPORT INFORMATION
  Report Type: Report from Study
  Country: US (occurrence: US)
  Receive Date: 20250903
  Receipt Date: 20250903
  Transmission Date: 20251021
  Serious: Yes (Other)
  Sender: ALEXION PHARMACEUTICALS
  Company Number: US-AstraZeneca-CH-00939399A

PATIENT
  Sex: Male

DRUGS (1)
  1. SOLIRIS [Suspect]
     Active Substance: ECULIZUMAB
     Indication: Myasthenia gravis
     Route: 065

REACTIONS (9)
  - Hip fracture [Unknown]
  - Aortic injury [Unknown]
  - Fall [Unknown]
  - Hemiparesis [Unknown]
  - Gait disturbance [Unknown]
  - Lower limb fracture [Unknown]
  - Contusion [Unknown]
  - Asthenia [Unknown]
  - Muscular weakness [Unknown]
